FAERS Safety Report 10012593 (Version 2)
Quarter: 2014Q3

REPORT INFORMATION
  Report Type: Not Available
  Country: DE (occurrence: DE)
  Receive Date: 20140314
  Receipt Date: 20140912
  Transmission Date: 20150326
  Serious: Yes (Other)
  Sender: FDA-Public Use
  Company Number: DE-PURDUE-DEU-2014-0013873

PATIENT
  Age: 60 Year
  Sex: Female
  Weight: 64 kg

DRUGS (3)
  1. OXYGESIC 10 MG [Suspect]
     Active Substance: OXYCODONE
     Indication: POSTOPERATIVE ANALGESIA
     Dosage: 10 MG, BID
     Route: 048
  2. NOVALGIN [Suspect]
     Active Substance: METAMIZOLE SODIUM
     Indication: POSTOPERATIVE ANALGESIA
     Dosage: 500 MG, Q3H
     Route: 048
  3. DIPIDOLOR [Suspect]
     Active Substance: PIRITRAMIDE
     Indication: POSTOPERATIVE ANALGESIA
     Dosage: 3 MG/ML, DAILY
     Route: 040

REACTIONS (9)
  - Nightmare [Recovered/Resolved]
  - Disturbance in attention [Recovering/Resolving]
  - Nausea [Recovering/Resolving]
  - Parosmia [Recovered/Resolved]
  - Disturbance in attention [Not Recovered/Not Resolved]
  - Dysgeusia [Recovering/Resolving]
  - Megacolon [Recovered/Resolved]
  - Mydriasis [Recovering/Resolving]
  - Visual impairment [Recovering/Resolving]

NARRATIVE: CASE EVENT DATE: 201401
